FAERS Safety Report 8846422 (Version 1)
Quarter: 2012Q4

REPORT INFORMATION
  Report Type: 
  Country: BE (occurrence: BE)
  Receive Date: 20121017
  Receipt Date: 20121017
  Transmission Date: 20130627
  Serious: Yes (Other)
  Sender: FDA-Public Use
  Company Number: BE-PFIZER INC-2012257891

PATIENT
  Sex: Female

DRUGS (1)
  1. PANTOMED [Suspect]
     Dosage: UNK
     Route: 048

REACTIONS (1)
  - Renal impairment [Unknown]
